FAERS Safety Report 10381353 (Version 2)
Quarter: 2014Q3

REPORT INFORMATION
  Report Type: Spontaneous
  Country: JP (occurrence: JP)
  Receive Date: 20140813
  Receipt Date: 20140825
  Transmission Date: 20150326
  Serious: Yes (Hospitalization)
  Sender: FDA-Public Use
  Company Number: JP-ASTELLAS-2014US010057

PATIENT
  Age: 76 Year
  Sex: Male

DRUGS (4)
  1. ERLOTINIB [Suspect]
     Active Substance: ERLOTINIB
     Indication: INTRADUCTAL PAPILLARY MUCINOUS NEOPLASM
     Dosage: UNK, UNKNOWN FREQ.
     Route: 048
  2. GEMCITABINE HYDROCHLORIDE. [Concomitant]
     Active Substance: GEMCITABINE HYDROCHLORIDE
     Indication: INTRADUCTAL PAPILLARY MUCINOUS NEOPLASM
     Dosage: UNK UNK, UNKNOWN FREQ.
     Route: 041
  3. GIMERACIL/OTERACIL POTASSIUM/TEGAFUR [Concomitant]
     Active Substance: GIMERACIL\OTERACIL POTASSIUM\TEGAFUR
     Indication: INTRADUCTAL PAPILLARY MUCINOUS NEOPLASM
     Dosage: UNK, UNKNOWN FREQ.
     Route: 048
  4. IRINOTECAN HYDROCHLORIDE TRIHYDRATE [Concomitant]
     Active Substance: IRINOTECAN HYDROCHLORIDE
     Indication: INTRADUCTAL PAPILLARY MUCINOUS NEOPLASM
     Dosage: UNK UNK, UNKNOWN FREQ.
     Route: 041

REACTIONS (1)
  - Acute respiratory distress syndrome [Recovering/Resolving]
